FAERS Safety Report 4435695-X (Version None)
Quarter: 2004Q3

REPORT INFORMATION
  Report Type: 
  Country: None (occurrence: None)
  Receive Date: 20040726
  Receipt Date: 20040422
  Transmission Date: 20050211
  Serious: No
  Sender: FDA-Public Use
  Company Number: USA040465662

PATIENT
  Age: 73 Year
  Sex: Female

DRUGS (5)
  1. FORTEO [Suspect]
     Indication: OSTEOPOROSIS
     Dates: start: 20040420, end: 20040421
  2. SYNTHROID [Concomitant]
  3. PRAVACHOL [Concomitant]
  4. CALCIUM [Concomitant]
  5. FOSAMAX [Concomitant]

REACTIONS (3)
  - INJECTION SITE DISCOLOURATION [None]
  - INJECTION SITE HAEMORRHAGE [None]
  - NERVOUSNESS [None]
